FAERS Safety Report 9068530 (Version 1)
Quarter: 2013Q1

REPORT INFORMATION
  Report Type: Spontaneous
  Country: US (occurrence: None)
  Receive Date: 20130212
  Receipt Date: 20130212
  Transmission Date: 20140127
  Serious: No
  Sender: FDA-Public Use
  Company Number: None

PATIENT
  Age: 36 Year
  Sex: Female
  Weight: 120.2 kg

DRUGS (2)
  1. ESCITALOPRAM [Suspect]
     Indication: DEPRESSION
     Dosage: 20 MG DAILY PO
     Route: 048
     Dates: start: 20130131, end: 20130207
  2. ESCITALOPRAM [Suspect]
     Indication: ANXIETY
     Dosage: 20 MG DAILY PO
     Route: 048
     Dates: start: 20130131, end: 20130207

REACTIONS (6)
  - Drug withdrawal syndrome [None]
  - Headache [None]
  - Muscle twitching [None]
  - Anxiety [None]
  - Paraesthesia [None]
  - Dizziness [None]
